FAERS Safety Report 4406249-6 (Version None)
Quarter: 2004Q3

REPORT INFORMATION
  Report Type: 
  Country: None (occurrence: None)
  Receive Date: 20040716
  Receipt Date: 20040716
  Transmission Date: 20050211
  Serious: No
  Sender: FDA-Public Use
  Company Number: 2004AP01851

PATIENT
  Age: 77 Year
  Sex: Male
  Weight: 66 kg

DRUGS (3)
  1. OMEPRAL [Suspect]
     Indication: REFLUX OESOPHAGITIS
     Dosage: 10 MG DAILY PO
     Route: 048
     Dates: start: 20030405, end: 20030525
  2. OMEPRAL [Suspect]
     Indication: REFLUX OESOPHAGITIS
     Dosage: 10 MG QOD PO
     Route: 048
     Dates: start: 20030526, end: 20040131
  3. CONIEL [Concomitant]

REACTIONS (3)
  - BRONCHITIS [None]
  - HAEMOPTYSIS [None]
  - INTERSTITIAL LUNG DISEASE [None]
